FAERS Safety Report 8419416-1 (Version None)
Quarter: 2012Q2

REPORT INFORMATION
  Report Type: 
  Country: None (occurrence: None)
  Receive Date: 20120607
  Receipt Date: 20120529
  Transmission Date: 20120825
  Serious: Yes (Other)
  Sender: FDA-Public Use
  Company Number: CA-GLAXOSMITHKLINE-A0979391A

PATIENT
  Sex: Female

DRUGS (2)
  1. PAXIL [Suspect]
     Indication: DEPRESSED MOOD
     Dosage: 50MG PER DAY
     Route: 065
  2. SEIZURE MEDICATION [Concomitant]

REACTIONS (6)
  - VIITH NERVE PARALYSIS [None]
  - EYELID PTOSIS [None]
  - EAR PAIN [None]
  - PAIN IN JAW [None]
  - TREMOR [None]
  - DYSTONIA [None]
